FAERS Safety Report 16374910 (Version 3)
Quarter: 2019Q3

REPORT INFORMATION
  Report Type: Spontaneous
  Country: JP (occurrence: JP)
  Receive Date: 20190531
  Receipt Date: 20190702
  Transmission Date: 20191004
  Serious: Yes (Other)
  Sender: FDA-Public Use
  Company Number: JP-ROCHE-2328052

PATIENT
  Age: 62 Year
  Sex: Male
  Weight: 77 kg

DRUGS (5)
  1. ZETIA [Concomitant]
     Active Substance: EZETIMIBE
     Route: 048
     Dates: start: 201108, end: 20190614
  2. EPADEL [EICOSAPENTAENOIC ACID ETHYL ESTER] [Concomitant]
     Route: 048
     Dates: start: 201108
  3. BEZAFIBRATE [Concomitant]
     Active Substance: BEZAFIBRATE
     Route: 048
     Dates: start: 201108, end: 20190614
  4. GAZYVA [Suspect]
     Active Substance: OBINUTUZUMAB
     Indication: B-CELL LYMPHOMA
     Dosage: MOST RECENT DOSE:02/APR/2019
     Route: 041
     Dates: start: 20181112
  5. TREAKISYM [Suspect]
     Active Substance: BENDAMUSTINE HYDROCHLORIDE
     Indication: B-CELL LYMPHOMA
     Dosage: MOST RECENT DOSE:03/APR/2019
     Route: 041
     Dates: start: 20181112

REACTIONS (1)
  - Cytomegalovirus enterocolitis [Recovered/Resolved]

NARRATIVE: CASE EVENT DATE: 20190426
